FAERS Safety Report 5366904-0 (Version None)
Quarter: 2007Q2

REPORT INFORMATION
  Report Type: 
  Country: None (occurrence: None)
  Receive Date: 20070622
  Receipt Date: 20070306
  Transmission Date: 20071010
  Serious: No
  Sender: FDA-Public Use
  Company Number: US-ASTRAZENECA-2007UW04223

PATIENT
  Age: 69 Year
  Sex: Male

DRUGS (14)
  1. RHINOCORT [Suspect]
     Indication: NASAL DECONGESTION THERAPY
     Route: 045
  2. RHINOCORT [Suspect]
     Indication: COUGH
     Route: 045
  3. RHINOCORT [Suspect]
     Indication: RHINORRHOEA
     Route: 045
  4. PLAVIX [Concomitant]
  5. TOPROL-XL [Concomitant]
  6. PROTONIX [Concomitant]
  7. VITAMIN B6 [Concomitant]
  8. FOLIC ACID [Concomitant]
  9. WARFARIN SODIUM [Concomitant]
  10. RESTORIL [Concomitant]
  11. ZOCOR [Concomitant]
  12. LORECA [Concomitant]
  13. NIASPAN [Concomitant]
  14. ALTACE [Concomitant]

REACTIONS (2)
  - DRUG INEFFECTIVE [None]
  - MALAISE [None]
